FAERS Safety Report 5126548-2 (Version None)
Quarter: 2006Q4

REPORT INFORMATION
  Report Type: 
  Country: None (occurrence: None)
  Receive Date: 20061011
  Receipt Date: 20061011
  Transmission Date: 20070319
  Serious: Yes (Hospitalization)
  Sender: FDA-Public Use
  Company Number: None

PATIENT
  Age: 45 Year
  Sex: Female
  Weight: 47.6277 kg

DRUGS (114)
  1. ABRAXANE [Suspect]
     Indication: OVARIAN CANCER
     Dosage: 145.0MG/M2 D1,D8,D15 042
     Dates: start: 20060330
  2. ABRAXANE [Suspect]
     Indication: RECURRENT CANCER
     Dosage: 145.0MG/M2 D1,D8,D15 042
     Dates: start: 20060330
  3. CARBOPLATIN [Suspect]
     Indication: OVARIAN CANCER
     Dosage: 465MG/M2 D1 042
     Dates: start: 20060315
  4. CARBOPLATIN [Suspect]
     Indication: RECURRENT CANCER
     Dosage: 465MG/M2 D1 042
     Dates: start: 20060315
  5. DOXIL [Suspect]
     Indication: OVARIAN CANCER
     Dosage: 58.0MG/M2 Q 28 DAYS 042
     Dates: start: 20060525
  6. DOXIL [Suspect]
     Indication: RECURRENT CANCER
     Dosage: 58.0MG/M2 Q 28 DAYS 042
     Dates: start: 20060525
  7. D5/0.45NACL [Concomitant]
  8. ATIVAN [Concomitant]
  9. ZOFRAN [Concomitant]
  10. DEXTROSE [Concomitant]
  11. KCL TAB [Concomitant]
  12. POTASSIUM [Concomitant]
  13. DILAUDID [Concomitant]
  14. PEPCID [Concomitant]
  15. SOD CL [Concomitant]
  16. HEPARIN SODIUM [Concomitant]
  17. AMITRIPTYLINE (ELAVIL) [Concomitant]
  18. PANTOPRAZOLE (PROTONIX) [Concomitant]
  19. LASIX [Concomitant]
  20. D5/0.45NS-KCL20MEQ [Concomitant]
  21. NALOXONE (NARCAN) [Concomitant]
  22. HYDROMORPHONE HCL [Concomitant]
  23. OXYCODONE-ACET (ROXICET) [Concomitant]
  24. OXYCODONE (PERCOCET) [Concomitant]
  25. PROTONIX [Concomitant]
  26. DULCOLOX SUPP [Concomitant]
  27. SYRINGE SOD CL [Concomitant]
  28. LEVAQUIN [Concomitant]
  29. D5/045NS-KCL20MEQ [Concomitant]
  30. COUMDIN [Concomitant]
  31. VIVELLE [Concomitant]
  32. LASIX [Concomitant]
  33. DIPHENHYDRAMINE (BENADRYL) [Concomitant]
  34. ACETAMINOPHEN (TYLENOL) [Concomitant]
  35. REGLAN [Concomitant]
  36. ONDANSETRON HCL INJECTION (ZOFRAN) [Concomitant]
  37. ZOPIEMD (AMBIEN) [Concomitant]
  38. HYDROMORPHONE HCL [Concomitant]
  39. OXYCODONE (ROXICET) [Concomitant]
  40. LOVENOX [Concomitant]
  41. BLD GLUCOSE [Concomitant]
  42. SOD CL 0.9% [Concomitant]
  43. HYPER AD CENTR [Concomitant]
  44. FAT EMULSION [Concomitant]
  45. PEPCID [Concomitant]
  46. ALTRPLASE RECOMB (TPA) [Concomitant]
  47. SYRINGE [Concomitant]
  48. PROMTHAZINE (PHENERGAN) [Concomitant]
  49. DILAUDID [Concomitant]
  50. SOD CL 0.9% (ZOFRAN) [Concomitant]
  51. HEPARIN (HEPARIN FLUSH) [Concomitant]
  52. TRIAMTERENE (DYAZIDE) [Concomitant]
  53. AMBIEN [Concomitant]
  54. ACETAMINOPHEN TYLENOL (SUPPOSITORY) [Concomitant]
  55. PROMETHAZINE (PHENERGAN) [Concomitant]
  56. AMITRIPTYLINE (ELAVIL) [Concomitant]
  57. ALBUMIN (HUMAN) [Concomitant]
  58. LEVAQUIN [Concomitant]
  59. TPN [Concomitant]
  60. OXYCODONE (ROXICET) [Concomitant]
  61. OXYDCODONE (PERCOCET) [Concomitant]
  62. SYRINGE (DILAUDID) [Concomitant]
  63. NALOXONE: NARCAN [Concomitant]
  64. ESTRADIOL PATCH (VIVELLE) [Concomitant]
  65. HYPERAL AD CENTR [Concomitant]
  66. 15 MMOL/NAPHOS [Concomitant]
  67. ALOE VERA OINTMENT [Concomitant]
  68. MORPHINE [Concomitant]
  69. PIPERACILLIN-TAZ (ZOSYN) [Concomitant]
  70. VANCOMYCIN [Concomitant]
  71. LORAZEPAM INJECTION (ATIVAN) [Concomitant]
  72. NALOXONE (NARCAN) [Concomitant]
  73. TYLENOL SUPPOSITORY [Concomitant]
  74. AMBIEN [Concomitant]
  75. HYDROMORPHONE INJECTION [Concomitant]
  76. PHENERGAN [Concomitant]
  77. CONCIDES [Concomitant]
  78. HYPERAL AD CENTR [Concomitant]
  79. FAT EMULSION [Concomitant]
  80. MAZZIDE [Concomitant]
  81. ACCUV BID [Concomitant]
  82. FENTANYL [Concomitant]
  83. ESTRADIOL (VIVELLE) [Concomitant]
  84. D5/045NS-KCL MEQ [Concomitant]
  85. PIPERACILLIN TAZ [Concomitant]
  86. VANCOMYCIN [Concomitant]
  87. ZOSYN [Concomitant]
  88. GEMTAMICIN [Concomitant]
  89. DAPTOMYCIN [Concomitant]
  90. ACETAMINOPHEN TABLET (TYLENOL) [Concomitant]
  91. PREMED WITH BENADRYL [Concomitant]
  92. MAALOX FAST BLOCKER [Concomitant]
  93. PROTONIX [Concomitant]
  94. TROUGH [Concomitant]
  95. AMPICILLIN SODIUM [Concomitant]
  96. LOREAZEPAM (ATIVAN) [Concomitant]
  97. REGLAN [Concomitant]
  98. OXYCODONE-ACET [Concomitant]
  99. D5/0.45NACL [Concomitant]
  100. PANTOPRAZOLE SODIUM [Concomitant]
  101. LEVAQUIN [Concomitant]
  102. ESTRADEM PATCH [Concomitant]
  103. DECADRON [Concomitant]
  104. TAGAMET [Concomitant]
  105. EMMEND [Concomitant]
  106. DOXIL [Concomitant]
  107. ZOLPIDEM TARTRATE [Concomitant]
  108. AMITRIPTYLINE (ELVAIL) [Concomitant]
  109. ESTRADIOL (VIVELLE) [Concomitant]
  110. HEPARIN LOCK-FLUSH [Concomitant]
  111. NEUPOGEN [Concomitant]
  112. ARANESP [Concomitant]
  113. ABRAXANE [Concomitant]
  114. CARBOPLATIN [Concomitant]

REACTIONS (1)
  - FEEDING TUBE COMPLICATION [None]
